FAERS Safety Report 7416954-5 (Version None)
Quarter: 2011Q2

REPORT INFORMATION
  Report Type: 
  Country: None (occurrence: None)
  Receive Date: 20110412
  Receipt Date: 20110412
  Transmission Date: 20111010
  Serious: Yes (Other)
  Sender: FDA-Public Use
  Company Number: None

PATIENT
  Sex: Male

DRUGS (1)
  1. ACETAMINOPHEN AND HYDROCODONE BITARTRATE [Suspect]
     Indication: PRODUCT USED FOR UNKNOWN INDICATION
     Dosage: ONE TABLET Q 6HR ORAL
     Route: 048
     Dates: start: 20110322, end: 20110329

REACTIONS (3)
  - MALAISE [None]
  - DIZZINESS [None]
  - HEADACHE [None]
